FAERS Safety Report 9671956 (Version 1)
Quarter: 2013Q4

REPORT INFORMATION
  Report Type: Spontaneous
  Country: US (occurrence: US)
  Receive Date: 20131106
  Receipt Date: 20131106
  Transmission Date: 20140711
  Serious: No
  Sender: FDA-Public Use
  Company Number: US-ENDO PHARMACEUTICALS INC.-LISI20110026

PATIENT
  Age: 67 Year
  Sex: Male

DRUGS (3)
  1. LISINOPRIL TABLETS 40MG [Suspect]
     Indication: HYPERTENSION
     Route: 048
     Dates: start: 20101130
  2. HCTZ [Concomitant]
  3. ASPIRIN [Concomitant]

REACTIONS (1)
  - Neck pain [Unknown]
